FAERS Safety Report 5723023-9 (Version None)
Quarter: 2008Q2

REPORT INFORMATION
  Report Type: 
  Country: None (occurrence: None)
  Receive Date: 20080428
  Receipt Date: 20080428
  Transmission Date: 20081010
  Serious: Yes (Life-Threatening)
  Sender: FDA-Public Use
  Company Number: None

PATIENT
  Age: 61 Year
  Sex: Male
  Weight: 77.1115 kg

DRUGS (6)
  1. PHENYTOIN [Suspect]
     Indication: CONVULSION
     Dosage: 2 CAPSULES BY MOUTH EACH MORNING AND 3 CAPSULES EACH NIGHT
     Route: 048
  2. PHENYTOIN [Suspect]
     Indication: HEAD INJURY
     Dosage: 2 CAPSULES BY MOUTH EACH MORNING AND 3 CAPSULES EACH NIGHT
     Route: 048
  3. ASPIRIN [Concomitant]
  4. LIPITOR [Concomitant]
  5. AMLODIPINE [Concomitant]
  6. PLAVIX [Concomitant]

REACTIONS (1)
  - DRUG LEVEL DECREASED [None]
